FAERS Safety Report 6026517-4 (Version None)
Quarter: 2009Q1

REPORT INFORMATION
  Report Type: 
  Country: None (occurrence: None)
  Receive Date: 20090102
  Receipt Date: 20080812
  Transmission Date: 20090719
  Serious: Yes (Other)
  Sender: FDA-Public Use
  Company Number: AU-BRISTOL-MYERS SQUIBB COMPANY-14454482

PATIENT
  Age: 61 Year
  Sex: Female

DRUGS (29)
  1. KARVEZIDE TABS 150MG/12.5MG [Suspect]
     Indication: HYPERTENSION
     Dosage: 1 DF = 150MG/12.5MG
     Dates: start: 20031204
  2. STILNOX [Suspect]
     Indication: INSOMNIA
     Dosage: 1TAB AT NIGHT
  3. RULIDE [Suspect]
     Indication: LOCALISED INFECTION
     Dates: start: 20030906
  4. ACTONEL [Suspect]
     Dates: start: 20050516
  5. ACETAMINOPHEN W/ CODEINE [Suspect]
     Dates: start: 20040127
  6. ENSURE PLUS [Concomitant]
  7. PREDNISOLONE [Concomitant]
     Dates: start: 19990101
  8. ATACAND [Concomitant]
  9. VITAMIN D [Concomitant]
  10. OMEPRAZOLE [Concomitant]
     Indication: GASTROOESOPHAGEAL REFLUX DISEASE
  11. AROPAX [Concomitant]
  12. INTRAGAM [Concomitant]
  13. CEFAZOLIN [Concomitant]
     Indication: INFECTION
     Route: 042
     Dates: start: 20080630
  14. SERETIDE [Concomitant]
     Dosage: 1 DOSAGE FORM=250/50(UNITS NOT SPEC)
     Dates: start: 20040225
  15. KENACOMB OINTMENT [Concomitant]
     Route: 061
  16. ELEUPHRAT [Concomitant]
     Dosage: 1 DOSAGE FORM=0.5MG/1G/15G.
  17. TEMAZE [Concomitant]
     Dates: start: 20031202
  18. SYMBICORT [Concomitant]
     Indication: ASTHMA
     Dosage: 1 DOSAGE FORM= 200/6;120(UNITS NOT SPEC)
     Route: 055
     Dates: start: 20031204
  19. LIVIAL [Concomitant]
     Dates: start: 20031204
  20. PREDNISONE TAB [Concomitant]
     Dosage: 10 MG SINCE 1999; 37.5MG 18DEC03; 50MG 19DEC03; 20MG 20JAN04; 25MG 24MAR04;
     Dates: start: 20031204
  21. CHLOROMYCETIN [Concomitant]
     Indication: CONJUNCTIVITIS
     Dosage: CHLOROMYCETIN EYE DROPS 5%
     Route: 047
  22. NOROXIN [Concomitant]
     Dates: start: 20040225
  23. QUININE [Concomitant]
     Dates: start: 20040225
  24. ASPIRIN [Concomitant]
     Dates: start: 20031119
  25. OXIS [Concomitant]
     Route: 055
     Dates: start: 20031212
  26. LEVOTHYROXINE SODIUM [Concomitant]
     Dosage: DECREASED 100 MG TO 75 MICROGRAM.
  27. ADALAT [Concomitant]
     Dates: start: 20040917
  28. IRBESARTAN [Concomitant]
     Dates: start: 20040917
  29. SOFRADEX [Concomitant]
     Dates: start: 20050623

REACTIONS (3)
  - FALL [None]
  - STAPHYLOCOCCAL INFECTION [None]
  - UPPER LIMB FRACTURE [None]
